FAERS Safety Report 7169897-9 (Version None)
Quarter: 2010Q4

REPORT INFORMATION
  Report Type: 
  Country: None (occurrence: None)
  Receive Date: 20101206
  Receipt Date: 20101122
  Transmission Date: 20110411
  Serious: Yes (Other)
  Sender: FDA-Public Use
  Company Number: JP-ACCORD-007015

PATIENT

DRUGS (1)
  1. IRINOTECAN HCL [Suspect]
     Indication: COLORECTAL CANCER

REACTIONS (3)
  - BLOOD BILIRUBIN UNCONJUGATED INCREASED [None]
  - BLOOD IRON INCREASED [None]
  - TRANSFERRIN SATURATION INCREASED [None]
